FAERS Safety Report 8226949-X (Version None)
Quarter: 2012Q1

REPORT INFORMATION
  Report Type: 
  Country: None (occurrence: None)
  Receive Date: 20120322
  Receipt Date: 20120110
  Transmission Date: 20120608
  Serious: No
  Sender: FDA-Public Use
  Company Number: US-MYLANLABS-2011S1024828

PATIENT
  Age: 57 Year
  Sex: Female
  Weight: 65.32 kg

DRUGS (11)
  1. LUTEIN /01638501/ [Concomitant]
  2. MULTI-VITAMIN [Concomitant]
  3. FISH OIL [Concomitant]
  4. CALCIUM CARBONATE [Concomitant]
  5. BUSPIRONE HCL [Concomitant]
     Indication: DEPRESSION
     Route: 048
  6. ASCORBIC ACID [Concomitant]
  7. TRAZODONE HCL [Suspect]
     Route: 048
     Dates: start: 20111101
  8. GLUCOSAMINE CHONDROITIN  SULFATE [Concomitant]
  9. ZEAXANTHIN [Concomitant]
  10. TRAZODONE HCL [Suspect]
     Indication: DEPRESSION
     Route: 048
     Dates: start: 20031001, end: 20111101
  11. LEVOTHYROXINE SODIUM [Concomitant]
     Indication: THYROID DISORDER

REACTIONS (2)
  - DRY MOUTH [None]
  - DENTAL CARIES [None]
